FAERS Safety Report 18571057 (Version 1)
Quarter: 2020Q4

REPORT INFORMATION
  Report Type: Spontaneous
  Country: US (occurrence: US)
  Receive Date: 20201202
  Receipt Date: 20201202
  Transmission Date: 20210114
  Serious: No
  Sender: FDA-Public Use
  Company Number: US-NOVEN PHARMACEUTICALS, INC.-US2019000632

PATIENT

DRUGS (1)
  1. MINIVELLE [Suspect]
     Active Substance: ESTRADIOL
     Indication: PRODUCT USED FOR UNKNOWN INDICATION
     Dosage: APPLYING ONE PATCH OF 0.1 MG ON ONE SIDE AND ONE AND HALF PATCH OF 0.1 MG ON OTHER SIDE EVERY 48 HOU
     Route: 062
     Dates: start: 201906

REACTIONS (3)
  - Off label use [Not Recovered/Not Resolved]
  - Application site perspiration [Unknown]
  - Product administered at inappropriate site [Not Recovered/Not Resolved]

NARRATIVE: CASE EVENT DATE: 2019
